FAERS Safety Report 9288032 (Version 2)
Quarter: 2014Q1

REPORT INFORMATION
  Report Type: Spontaneous
  Country: US (occurrence: US)
  Receive Date: 20130514
  Receipt Date: 20140305
  Transmission Date: 20141002
  Serious: Yes (Hospitalization, Other)
  Sender: FDA-Public Use
  Company Number: US-COVIDIEN/TYCO HEALTHCARE/MALLINCKRODT-T201301869

PATIENT
  Age: 55 Year
  Sex: Female

DRUGS (13)
  1. OPTIMARK [Suspect]
     Indication: ANGIOGRAM
     Dosage: UNK
     Route: 065
     Dates: start: 20050309, end: 20050309
  2. OPTIMARK [Suspect]
     Indication: NUCLEAR MAGNETIC RESONANCE IMAGING BRAIN
     Dosage: UNK
     Route: 065
     Dates: start: 20060329, end: 20060329
  3. OPTIMARK [Suspect]
     Indication: NUCLEAR MAGNETIC RESONANCE IMAGING
     Dosage: UNK
     Route: 065
     Dates: start: 20060417, end: 20060417
  4. OPTIMARK [Suspect]
     Indication: NUCLEAR MAGNETIC RESONANCE IMAGING
     Dosage: UNK
     Route: 065
     Dates: start: 20060602, end: 20060602
  5. OPTIMARK [Suspect]
     Indication: NUCLEAR MAGNETIC RESONANCE IMAGING BRAIN
     Dosage: UNK
     Route: 065
     Dates: start: 20061112, end: 20061112
  6. LABETALOL [Concomitant]
     Dosage: 300 MG, BID
  7. CLONAZEPAM [Concomitant]
     Dosage: 1 MG, TID
  8. PREDNISONE [Concomitant]
     Dosage: 5 MG, QD
  9. DIOVAN [Concomitant]
  10. EFFEXOR [Concomitant]
     Dosage: 75 MG QHS AND 150 MG QD XR PREPARATION
  11. PREVACID [Concomitant]
  12. RENAGEL [Concomitant]
  13. NORVASC [Concomitant]

REACTIONS (37)
  - Nephrogenic systemic fibrosis [Not Recovered/Not Resolved]
  - Renal failure chronic [Unknown]
  - Coronary artery disease [Unknown]
  - Cardiac arrest [Recovered/Resolved]
  - Cardiac failure congestive [Unknown]
  - Syncope [Unknown]
  - Lung infection [Unknown]
  - Grand mal convulsion [Unknown]
  - Headache [Unknown]
  - Neuropathy peripheral [Unknown]
  - Fall [Unknown]
  - Decreased appetite [Unknown]
  - Dyspnoea exertional [Unknown]
  - Dyskinesia [Unknown]
  - Peripheral vascular disorder [Unknown]
  - Visual acuity reduced [Unknown]
  - Skin ulcer [Unknown]
  - Abnormal loss of weight [Unknown]
  - Deafness [Unknown]
  - Tinnitus [Unknown]
  - Vertigo [Unknown]
  - Pulmonary oedema [Recovering/Resolving]
  - Haemoptysis [Unknown]
  - Pneumonia [Unknown]
  - Pulmonary hypertension [Unknown]
  - Parathyroid disorder [Unknown]
  - Cardiomyopathy [Recovered/Resolved]
  - Hypokalaemia [Unknown]
  - Nausea [Unknown]
  - Vomiting [Unknown]
  - Diarrhoea [Unknown]
  - Pancreatic cyst [Unknown]
  - Rash [Unknown]
  - Eye swelling [Unknown]
  - Cellulitis [Unknown]
  - Oedema [Unknown]
  - Bundle branch block left [Unknown]
